FAERS Safety Report 5242863-6 (Version None)
Quarter: 2007Q1

REPORT INFORMATION
  Report Type: 
  Country: None (occurrence: None)
  Receive Date: 20070215
  Receipt Date: 20070201
  Transmission Date: 20070707
  Serious: Yes (Hospitalization)
  Sender: FDA-Public Use
  Company Number: 2007S1001005

PATIENT
  Age: 57 Year
  Sex: Male

DRUGS (2)
  1. KETOCONAZOLE [Suspect]
     Dosage: ; ORAL
     Route: 048
     Dates: start: 20070103, end: 20070110
  2. VINFLUNINE [Suspect]
     Indication: NEOPLASM MALIGNANT
     Dosage: ; INTRAVENOUS
     Route: 042
     Dates: start: 20070104

REACTIONS (1)
  - CELLULITIS [None]
